FAERS Safety Report 12106267 (Version 8)
Quarter: 2017Q1

REPORT INFORMATION
  Report Type: Report from Study
  Country: JP (occurrence: JP)
  Receive Date: 20160128
  Receipt Date: 20170331
  Transmission Date: 20170428
  Serious: Yes (Hospitalization, Other)
  Sender: FDA-Public Use
  Company Number: JP-INCYTE CORPORATION-2015IN001690

PATIENT
  Age: 73 Year
  Sex: Male
  Weight: 45 kg

DRUGS (29)
  1. JAKAVI [Suspect]
     Active Substance: RUXOLITINIB
     Dosage: 12.5 MG, BID
     Route: 048
     Dates: start: 20151116, end: 20160628
  2. HYDREA [Concomitant]
     Active Substance: HYDROXYUREA
     Dosage: 500 MG, UNK
     Route: 048
     Dates: start: 20150220, end: 20150319
  3. JAKAVI [Suspect]
     Active Substance: RUXOLITINIB
     Dosage: 10 MG, BID
     Dates: start: 20160629
  4. CALONAL [Concomitant]
     Active Substance: ACETAMINOPHEN
     Dosage: 400 MG, UNK
     Route: 048
  5. CALONAL [Concomitant]
     Active Substance: ACETAMINOPHEN
     Dosage: 400 MG, UNK
  6. JAKAVI [Suspect]
     Active Substance: RUXOLITINIB
     Dosage: 7.5 MG, BID
     Route: 048
     Dates: start: 20150110, end: 20150123
  7. HYDREA [Concomitant]
     Active Substance: HYDROXYUREA
     Indication: MYELOFIBROSIS
     Dosage: 1143 MG, UNK
     Route: 048
     Dates: start: 20141211
  8. JAKAVI [Suspect]
     Active Substance: RUXOLITINIB
     Dosage: 10 MG, BID
     Route: 048
     Dates: start: 20150926, end: 20151115
  9. HYDREA [Concomitant]
     Active Substance: HYDROXYUREA
     Dosage: 1143 MG, UNK
     Route: 048
     Dates: start: 20141226, end: 20150113
  10. JAKAVI [Suspect]
     Active Substance: RUXOLITINIB
     Indication: MYELOFIBROSIS
     Dosage: 5 MG, QD
     Route: 048
     Dates: start: 20141115, end: 20141128
  11. JAKAVI [Suspect]
     Active Substance: RUXOLITINIB
     Dosage: 5 MG, BID
     Route: 048
     Dates: start: 20141227, end: 20150109
  12. HYDREA [Concomitant]
     Active Substance: HYDROXYUREA
     Dosage: 214 MG, UNK
     Route: 048
     Dates: start: 20150320, end: 20150402
  13. JAKAVI [Suspect]
     Active Substance: RUXOLITINIB
     Dosage: 5 MG, BID
     Route: 048
     Dates: start: 20141129, end: 20141212
  14. JAKAVI [Suspect]
     Active Substance: RUXOLITINIB
     Dosage: 7.5 MG, BID
     Route: 048
     Dates: start: 20141213, end: 20141226
  15. JAKAVI [Suspect]
     Active Substance: RUXOLITINIB
     Dosage: 10 MG, BID
     Route: 048
     Dates: start: 20150124, end: 20150206
  16. JAKAVI [Suspect]
     Active Substance: RUXOLITINIB
     Dosage: 15 MG, BID
     Route: 048
     Dates: start: 20150308, end: 20150908
  17. CALONAL [Concomitant]
     Active Substance: ACETAMINOPHEN
     Dosage: 400 MG, UNK
     Route: 048
  18. CALONAL [Concomitant]
     Active Substance: ACETAMINOPHEN
     Dosage: 400 MG, UNK
  19. CALONAL [Concomitant]
     Active Substance: ACETAMINOPHEN
     Indication: MYELOFIBROSIS
     Dosage: 400 MG
     Route: 048
  20. HYDREA [Concomitant]
     Active Substance: HYDROXYUREA
     Dosage: 1000 MG, UNK
     Route: 048
     Dates: start: 20141212, end: 20141225
  21. JAKAVI [Suspect]
     Active Substance: RUXOLITINIB
     Dosage: 12.5 MG, BID
     Route: 048
     Dates: start: 20150207, end: 20150307
  22. JAKAVI [Suspect]
     Active Substance: RUXOLITINIB
     Dosage: 25 MG, QD (15 MG AFTER BREAKFAST, 10 MG AFTER DINNER)
     Route: 048
     Dates: start: 20150909, end: 20150925
  23. CALONAL [Concomitant]
     Active Substance: ACETAMINOPHEN
     Dosage: 400 MG, UNK
  24. CALONAL [Concomitant]
     Active Substance: ACETAMINOPHEN
     Dosage: 400 MG, UNK
  25. CALONAL [Concomitant]
     Active Substance: ACETAMINOPHEN
     Dosage: 400 MG, UNK
  26. CALONAL [Concomitant]
     Active Substance: ACETAMINOPHEN
     Dosage: 400 MG, UNK
  27. CALONAL [Concomitant]
     Active Substance: ACETAMINOPHEN
     Dosage: 400 MG, UNK
  28. HYDREA [Concomitant]
     Active Substance: HYDROXYUREA
     Dosage: 1000 MG, UNK
     Route: 048
     Dates: start: 20150114, end: 20150122
  29. HYDREA [Concomitant]
     Active Substance: HYDROXYUREA
     Dosage: 714 MG, UNK
     Route: 048
     Dates: start: 20150123, end: 20150219

REACTIONS (17)
  - Myelofibrosis [Unknown]
  - Blood pressure increased [Unknown]
  - Pulmonary embolism [Recovering/Resolving]
  - Blood alkaline phosphatase increased [Recovered/Resolved]
  - Lymphocyte percentage decreased [Unknown]
  - Blood pressure diastolic decreased [Unknown]
  - Anaemia [Recovering/Resolving]
  - Herpes zoster [Recovered/Resolved]
  - Platelet count increased [Unknown]
  - Tumour marker increased [Not Recovered/Not Resolved]
  - White blood cell count increased [Unknown]
  - Infection [Unknown]
  - Spinal cord compression [Recovering/Resolving]
  - Myeloblast count increased [Not Recovered/Not Resolved]
  - Deep vein thrombosis [Recovering/Resolving]
  - Dermatitis acneiform [Not Recovered/Not Resolved]
  - Headache [Recovered/Resolved]

NARRATIVE: CASE EVENT DATE: 20141226
